FAERS Safety Report 19557727 (Version 1)
Quarter: 2021Q3

REPORT INFORMATION
  Report Type: Spontaneous
  Country: CA (occurrence: CA)
  Receive Date: 20210715
  Receipt Date: 20210715
  Transmission Date: 20211014
  Serious: Yes (Hospitalization)
  Sender: FDA-Public Use
  Company Number: CA-BAYER-2021-174529

PATIENT
  Age: 69 Year
  Sex: Female

DRUGS (1)
  1. ALEVE [Suspect]
     Active Substance: NAPROXEN SODIUM
     Dosage: UNK
     Route: 048

REACTIONS (4)
  - Haemoglobin decreased [Unknown]
  - Hepatic cirrhosis [Unknown]
  - Mallory-Weiss syndrome [Unknown]
  - Gastrointestinal haemorrhage [Unknown]
